FAERS Safety Report 8730290 (Version 3)
Quarter: 2012Q4

REPORT INFORMATION
  Report Type: 
  Country: US (occurrence: US)
  Receive Date: 20120817
  Receipt Date: 20121010
  Transmission Date: 20130627
  Serious: Yes (Hospitalization)
  Sender: FDA-Public Use
  Company Number: US-BAUSCH-BL-2012-000404

PATIENT
  Age: 21 None
  Sex: Female
  Weight: 63.56 kg

DRUGS (2)
  1. DESMOPRESSIN ACETATE [Suspect]
     Indication: DIABETES INSIPIDUS
     Dosage: 3 sprays in nostrils total, at bedtime
     Dates: start: 200808
  2. NORETHISTERONE ACETATE [Concomitant]
     Dosage: 1 capsule, once daily

REACTIONS (2)
  - Grand mal convulsion [Recovered/Resolved]
  - Hyponatraemia [Recovered/Resolved]
